FAERS Safety Report 9537147 (Version 1)
Quarter: 2013Q3

REPORT INFORMATION
  Report Type: Spontaneous
  Country: US (occurrence: US)
  Receive Date: 20130919
  Receipt Date: 20130919
  Transmission Date: 20140515
  Serious: No
  Sender: FDA-Public Use
  Company Number: US-PURDUE-USA-2012-0091689

PATIENT
  Sex: Male

DRUGS (2)
  1. DILAUDID ORAL LIQUID [Suspect]
     Indication: PAIN
     Dosage: 3 ML, PRN
  2. DILAUDID ORAL LIQUID [Suspect]
     Dosage: 3 ML, Q4H

REACTIONS (2)
  - Pain [Unknown]
  - Inappropriate schedule of drug administration [Unknown]
